FAERS Safety Report 13137485 (Version 2)
Quarter: 2017Q2

REPORT INFORMATION
  Report Type: Spontaneous
  Country: GB (occurrence: GB)
  Receive Date: 20170123
  Receipt Date: 20170428
  Transmission Date: 20170830
  Serious: Yes (Other)
  Sender: FDA-Public Use
  Company Number: GB-ROCHE-1882285

PATIENT
  Age: 68 Year
  Sex: Female

DRUGS (2)
  1. TRIAMCINOLONE ACETONIDE. [Concomitant]
     Active Substance: TRIAMCINOLONE ACETONIDE
     Indication: DIABETIC RETINAL OEDEMA
     Route: 031
  2. RANIBIZUMAB [Suspect]
     Active Substance: RANIBIZUMAB
     Indication: DIABETIC RETINAL OEDEMA
     Dosage: UNK
     Route: 065
     Dates: start: 201210

REACTIONS (3)
  - Treatment failure [Unknown]
  - Diabetic retinal oedema [Unknown]
  - Therapeutic response decreased [Unknown]
